FAERS Safety Report 19677489 (Version 1)
Quarter: 2021Q3

REPORT INFORMATION
  Report Type: Spontaneous
  Country: JP (occurrence: JP)
  Receive Date: 20210810
  Receipt Date: 20210810
  Transmission Date: 20211014
  Serious: Yes (Life-Threatening)
  Sender: FDA-Public Use
  Company Number: JP-IPSEN BIOPHARMACEUTICALS, INC.-2021-19435

PATIENT
  Sex: Male

DRUGS (4)
  1. CALCIUM FOLINATE [Concomitant]
     Active Substance: LEUCOVORIN CALCIUM
     Indication: PANCREATIC CARCINOMA
     Dosage: 200 MG/M2
     Route: 042
     Dates: start: 20210607, end: 20210705
  2. 5?FU [Concomitant]
     Active Substance: FLUOROURACIL
     Indication: PANCREATIC CARCINOMA
     Dosage: 2400 MG/M2
     Route: 042
     Dates: start: 20210607, end: 20210705
  3. ONIVYDE [Suspect]
     Active Substance: IRINOTECAN HYDROCHLORIDE
     Dosage: 70 MG/M2
     Route: 042
     Dates: start: 20210705, end: 20210705
  4. ONIVYDE [Suspect]
     Active Substance: IRINOTECAN HYDROCHLORIDE
     Indication: PANCREATIC CARCINOMA
     Dosage: 70 MG/M2
     Route: 042
     Dates: start: 20210607, end: 2021

REACTIONS (1)
  - Haemobilia [Recovered/Resolved]

NARRATIVE: CASE EVENT DATE: 20210711
